FAERS Safety Report 4287187-9 (Version None)
Quarter: 2004Q1

REPORT INFORMATION
  Report Type: 
  Country: None (occurrence: None)
  Receive Date: 20040204
  Receipt Date: 20040126
  Transmission Date: 20041129
  Serious: Yes (Other)
  Sender: FDA-Public Use
  Company Number: 2004005958

PATIENT
  Age: 40 Year
  Sex: Male
  Weight: 79.3795 kg

DRUGS (7)
  1. NEURONTIN [Suspect]
     Indication: PARTIAL SEIZURES
     Dosage: 2400 MG (QID), ORAL
     Route: 048
  2. NAPROXEN [Suspect]
     Indication: ILL-DEFINED DISORDER
     Dosage: 1000 MG (BID), ORAL
     Route: 048
  3. CLONAZEPAM [Concomitant]
  4. LAMOTRIGINE [Concomitant]
  5. MULTIVITAMIN [Concomitant]
  6. CALCIUM (CALCIUM) [Concomitant]
  7. FISH OIL (FISH OIL) [Concomitant]

REACTIONS (7)
  - ABNORMAL BEHAVIOUR [None]
  - BRONCHITIS [None]
  - DRUG EFFECT DECREASED [None]
  - DRUG INTERACTION [None]
  - PHARMACEUTICAL PRODUCT COMPLAINT [None]
  - SINUSITIS [None]
  - TONIC CLONIC MOVEMENTS [None]
